FAERS Safety Report 22612589 (Version 1)
Quarter: 2023Q2

REPORT INFORMATION
  Report Type: Spontaneous
  Country: US (occurrence: US)
  Receive Date: 20230617
  Receipt Date: 20230617
  Transmission Date: 20230721
  Serious: Yes (Other)
  Sender: FDA-Public Use
  Company Number: US-TEVA-2023-US-2896546

PATIENT
  Age: 49 Year
  Sex: Female
  Weight: 72.57 kg

DRUGS (2)
  1. COPAXONE [Suspect]
     Active Substance: GLATIRAMER ACETATE
     Indication: Multiple sclerosis
     Route: 065
     Dates: start: 2001
  2. COPAXONE [Suspect]
     Active Substance: GLATIRAMER ACETATE
     Dosage: MONDAY AND FRIDAY
     Route: 065

REACTIONS (13)
  - Seizure [Recovered/Resolved]
  - Chills [Unknown]
  - Nasopharyngitis [Recovered/Resolved]
  - Dyspnoea [Recovered/Resolved]
  - Hyperhidrosis [Recovered/Resolved]
  - Flushing [Recovered/Resolved]
  - Feeling hot [Unknown]
  - Tremor [Recovered/Resolved]
  - Injection site scar [Recovered/Resolved]
  - Injection site reaction [Unknown]
  - Wrong technique in device usage process [Unknown]
  - Product prescribing error [Recovered/Resolved]
  - Product use issue [Unknown]
